FAERS Safety Report 10156629 (Version 1)
Quarter: 2014Q2

REPORT INFORMATION
  Report Type: Spontaneous
  Country: US (occurrence: None)
  Receive Date: 20140506
  Receipt Date: 20140506
  Transmission Date: 20141212
  Serious: Yes (Hospitalization)
  Sender: FDA-Public Use
  Company Number: None

PATIENT
  Age: 69 Year
  Sex: Male
  Weight: 92.08 kg

DRUGS (9)
  1. TENOFOVIR [Suspect]
     Indication: HIV INFECTION
     Dosage: 1 PILL
     Route: 048
  2. TRAZODONE HCL [Concomitant]
  3. GABAPENTIN [Concomitant]
  4. NOVIR [Concomitant]
  5. VIREAD [Concomitant]
  6. LISINOPRIL [Concomitant]
  7. ATORVASTATIN CALCIUM [Concomitant]
  8. METOPROLOL SUCCINATE [Concomitant]
  9. POTASIUM CHLORIDE CRYS [Concomitant]

REACTIONS (3)
  - Pancreatitis [None]
  - Cholelithiasis [None]
  - Myocardial infarction [None]
